APPROVED DRUG PRODUCT: MORPHINE SULFATE
Active Ingredient: MORPHINE SULFATE
Strength: 15MG
Dosage Form/Route: TABLET, EXTENDED RELEASE;ORAL
Application: A076733 | Product #001
Applicant: NESHER PHARMACEUTICALS USA LLC
Approved: May 19, 2004 | RLD: No | RS: No | Type: DISCN